FAERS Safety Report 18482648 (Version 2)
Quarter: 2020Q4

REPORT INFORMATION
  Report Type: Spontaneous
  Country: US (occurrence: US)
  Receive Date: 20201109
  Receipt Date: 20201117
  Transmission Date: 20210114
  Serious: No
  Sender: FDA-Public Use
  Company Number: US-BEH-2020124532

PATIENT
  Sex: Female

DRUGS (3)
  1. RITUXAN [Concomitant]
     Active Substance: RITUXIMAB
     Dosage: 500MG / 50ML
  2. HAEGARDA [Suspect]
     Active Substance: HUMAN C1-ESTERASE INHIBITOR
     Indication: PROPHYLAXIS
  3. HAEGARDA [Suspect]
     Active Substance: HUMAN C1-ESTERASE INHIBITOR
     Indication: HEREDITARY ANGIOEDEMA
     Dosage: 4000 INTERNATIONAL UNIT, BIW
     Route: 058

REACTIONS (5)
  - Adverse drug reaction [Not Recovered/Not Resolved]
  - Pulmonary pain [Recovered/Resolved]
  - Hypoaesthesia [Not Recovered/Not Resolved]
  - Dyspnoea [Not Recovered/Not Resolved]
  - Joint noise [Not Recovered/Not Resolved]
